FAERS Safety Report 24592906 (Version 1)
Quarter: 2024Q4

REPORT INFORMATION
  Report Type: Spontaneous
  Country: US (occurrence: None)
  Receive Date: 20241107
  Receipt Date: 20241107
  Transmission Date: 20250115
  Serious: Yes (Life-Threatening, Hospitalization)
  Sender: Public
  Company Number: None

PATIENT
  Age: 97 Year
  Sex: Male

DRUGS (3)
  1. CORDARONE [Suspect]
     Active Substance: AMIODARONE HYDROCHLORIDE
     Indication: Atrial fibrillation
     Dates: start: 20240427
  2. METOPROLOL [Suspect]
     Active Substance: METOPROLOL
  3. APIXABAN [Suspect]
     Active Substance: APIXABAN

REACTIONS (8)
  - Bradycardia [None]
  - Cough [None]
  - Blood creatinine increased [None]
  - Dizziness [None]
  - Fatigue [None]
  - Palpitations [None]
  - Dyspnoea [None]
  - Electrocardiogram QT prolonged [None]

NARRATIVE: CASE EVENT DATE: 20240604
